FAERS Safety Report 24135430 (Version 3)
Quarter: 2025Q1

REPORT INFORMATION
  Report Type: Spontaneous
  Country: CO (occurrence: CO)
  Receive Date: 20240725
  Receipt Date: 20250305
  Transmission Date: 20250409
  Serious: Yes (Death, Hospitalization, Other)
  Sender: REGENERON
  Company Number: CO-SA-SAC20240719000370

PATIENT
  Age: 85 Year
  Sex: Female

DRUGS (1)
  1. PRALUENT [Suspect]
     Active Substance: ALIROCUMAB
     Indication: Type IIa hyperlipidaemia
     Dosage: 75 MG, Q15D
     Route: 058
     Dates: start: 20190701, end: 20240715

REACTIONS (6)
  - Death [Fatal]
  - Cellulitis [Recovering/Resolving]
  - Fall [Unknown]
  - Lower limb fracture [Unknown]
  - Inflammation [Unknown]
  - Nasal septum perforation [Unknown]

NARRATIVE: CASE EVENT DATE: 20241209
